FAERS Safety Report 24246681 (Version 2)
Quarter: 2024Q3

REPORT INFORMATION
  Report Type: Spontaneous
  Country: CN (occurrence: CN)
  Receive Date: 20240825
  Receipt Date: 20240903
  Transmission Date: 20241017
  Serious: Yes (Hospitalization, Other)
  Sender: ORGANON
  Company Number: CN-ORGANON-O2408CHN001642

PATIENT
  Age: 91 Year
  Sex: Female
  Weight: 45 kg

DRUGS (2)
  1. SINGULAIR [Suspect]
     Active Substance: MONTELUKAST SODIUM
     Indication: Dyspnoea
     Dosage: 10 MILLIGRAM, QD
     Route: 048
     Dates: start: 20240721, end: 20240722
  2. LEVOFLOXACIN [Suspect]
     Active Substance: LEVOFLOXACIN
     Indication: Pneumonia
     Dosage: INTRAVENOUS INFUSION, 0.5G, QD
     Route: 042
     Dates: start: 20240720, end: 20240722

REACTIONS (2)
  - Epilepsy [Recovering/Resolving]
  - Product use in unapproved indication [Unknown]

NARRATIVE: CASE EVENT DATE: 20240721
